FAERS Safety Report 4903756-4 (Version None)
Quarter: 2006Q1

REPORT INFORMATION
  Report Type: 
  Country: None (occurrence: None)
  Receive Date: 20060203
  Receipt Date: 20060124
  Transmission Date: 20060701
  Serious: Yes (Hospitalization)
  Sender: FDA-Public Use
  Company Number: 2006012517

PATIENT
  Age: 52 Year
  Sex: Male

DRUGS (7)
  1. PIROXICAM [Suspect]
     Indication: NECK PAIN
     Dosage: ORAL
     Route: 048
     Dates: end: 20051130
  2. LIPITOR [Concomitant]
  3. LODOZ (BISOPROLOL FUMARATE, HYDROCHLOROTHIAZIDE) [Concomitant]
  4. HYDROCHLOROTHIAZIDE [Concomitant]
  5. CITALOPRAM (CITALOPRAM) [Concomitant]
  6. ALLOPUR (ALLOPURINOL) [Concomitant]
  7. LACTULOSE [Concomitant]

REACTIONS (4)
  - ABDOMINAL PAIN UPPER [None]
  - DUODENAL ULCER HAEMORRHAGE [None]
  - FAECES DISCOLOURED [None]
  - HAEMOGLOBIN DECREASED [None]
